FAERS Safety Report 25048780 (Version 2)
Quarter: 2025Q2

REPORT INFORMATION
  Report Type: Spontaneous
  Country: US (occurrence: US)
  Receive Date: 20250307
  Receipt Date: 20250417
  Transmission Date: 20250717
  Serious: Yes (Hospitalization, Other)
  Sender: BRISTOL MYERS SQUIBB
  Company Number: US-BRISTOL-MYERS SQUIBB COMPANY-2025-033334

PATIENT
  Age: 78 Year
  Sex: Female

DRUGS (1)
  1. POMALYST [Suspect]
     Active Substance: POMALIDOMIDE
     Indication: Plasma cell myeloma
     Dosage: TAKE 1 CAPSULE (3 MG TOTAL) BY MOUTH DAILY FOR 21 DAYS, THEN 7 DAYS OFF; DAILY 21 DAYS/OFF 7
     Route: 048

REACTIONS (2)
  - Viral infection [Not Recovered/Not Resolved]
  - Drug ineffective [Unknown]
